FAERS Safety Report 12266876 (Version 1)
Quarter: 2016Q2

REPORT INFORMATION
  Report Type: Spontaneous
  Country: US (occurrence: US)
  Receive Date: 20160414
  Receipt Date: 20160414
  Transmission Date: 20160815
  Serious: Yes (Hospitalization)
  Sender: FDA-Public Use
  Company Number: US-009507513-1604USA008022

PATIENT
  Sex: Female

DRUGS (2)
  1. IBRANCE [Suspect]
     Active Substance: PALBOCICLIB
     Indication: NEOPLASM
     Dosage: UNK
     Dates: start: 201503, end: 20160404
  2. ZOCOR [Suspect]
     Active Substance: SIMVASTATIN
     Indication: NEOPLASM
     Dosage: UNK
     Route: 048
     Dates: start: 20160218, end: 20160404

REACTIONS (6)
  - Muscle atrophy [Unknown]
  - Liver disorder [Unknown]
  - Renal impairment [Unknown]
  - Muscle enzyme increased [Unknown]
  - Abasia [Unknown]
  - Muscular weakness [Unknown]

NARRATIVE: CASE EVENT DATE: 2016
